FAERS Safety Report 4760586-4 (Version None)
Quarter: 2005Q3

REPORT INFORMATION
  Report Type: 
  Country: None (occurrence: None)
  Receive Date: 20050826
  Receipt Date: 20041022
  Transmission Date: 20060218
  Serious: Yes (Death, Other)
  Sender: FDA-Public Use
  Company Number: USA-2004-0016872

PATIENT
  Age: 47 Year
  Sex: Female
  Weight: 91.2 kg

DRUGS (2)
  1. OXYCODONE HCL [Suspect]
     Indication: PAIN
  2. ETHANOL (ETHANOL) [Suspect]

REACTIONS (2)
  - DRUG ABUSER [None]
  - OVERDOSE [None]
